FAERS Safety Report 7296322-X (Version None)
Quarter: 2011Q1

REPORT INFORMATION
  Report Type: 
  Country: None (occurrence: None)
  Receive Date: 20110211
  Receipt Date: 20110211
  Transmission Date: 20110831
  Serious: Yes (Hospitalization, Disabling)
  Sender: FDA-Public Use
  Company Number: None

PATIENT
  Age: 77 Year
  Sex: Male

DRUGS (1)
  1. WARFARIN SODIUM [Suspect]
     Indication: TRANSIENT ISCHAEMIC ATTACK
     Dosage: 5 MG EVERY DAY PO
     Route: 048

REACTIONS (6)
  - MUSCLE SPASMS [None]
  - TRANSIENT ISCHAEMIC ATTACK [None]
  - INTERNATIONAL NORMALISED RATIO DECREASED [None]
  - FALL [None]
  - CEREBROVASCULAR ACCIDENT [None]
  - PAIN IN EXTREMITY [None]
